FAERS Safety Report 13717816 (Version 1)
Quarter: 2017Q3

REPORT INFORMATION
  Report Type: Spontaneous
  Country: US (occurrence: US)
  Receive Date: 20170705
  Receipt Date: 20170705
  Transmission Date: 20171127
  Serious: Yes (Hospitalization)
  Sender: FDA-Public Use
  Company Number: US-ALLERGAN-1713469US

PATIENT
  Age: 28 Year
  Sex: Female

DRUGS (2)
  1. ERTAPENEM [Suspect]
     Active Substance: ERTAPENEM
     Indication: PRODUCT USED FOR UNKNOWN INDICATION
     Dosage: UNK
     Route: 041
     Dates: start: 201702, end: 201702
  2. DALVANCE [Suspect]
     Active Substance: DALBAVANCIN
     Indication: BACTERIAL DISEASE CARRIER
     Dosage: UNK, SINGLE
     Route: 041
     Dates: start: 201702, end: 201702

REACTIONS (2)
  - Alopecia [Unknown]
  - Hypersensitivity [Recovered/Resolved]

NARRATIVE: CASE EVENT DATE: 201702
